FAERS Safety Report 7789724-6 (Version None)
Quarter: 2011Q3

REPORT INFORMATION
  Report Type: 
  Country: None (occurrence: None)
  Receive Date: 20110930
  Receipt Date: 20110923
  Transmission Date: 20111222
  Serious: Yes (Other)
  Sender: FDA-Public Use
  Company Number: US-BRISTOL-MYERS SQUIBB COMPANY-16091613

PATIENT
  Age: 47 Year
  Sex: Male
  Weight: 78 kg

DRUGS (10)
  1. CIALIS [Concomitant]
  2. SIMVASTATIN [Concomitant]
  3. COMPAZINE [Concomitant]
  4. LEUKINE [Suspect]
     Indication: MALIGNANT MELANOMA
     Dosage: LAST DOSE:08SEP2011
     Route: 058
     Dates: start: 20110715, end: 20110908
  5. VICODIN [Concomitant]
  6. GRANISETRON [Concomitant]
  7. IPILIMUMAB [Suspect]
     Indication: MALIGNANT MELANOMA
     Dosage: LAST DOSE:26AUG2011
     Route: 042
     Dates: start: 20110715, end: 20110826
  8. ASPIRIN [Concomitant]
  9. OMEGA 3 FATTY ACID [Concomitant]
  10. CHOLECALCIFEROL [Concomitant]

REACTIONS (1)
  - HEADACHE [None]
